FAERS Safety Report 6644407-0 (Version None)
Quarter: 2010Q1

REPORT INFORMATION
  Report Type: 
  Country: None (occurrence: None)
  Receive Date: 20100317
  Receipt Date: 20100303
  Transmission Date: 20100710
  Serious: Yes (Disabling, Other)
  Sender: FDA-Public Use
  Company Number: 2010AP000427

PATIENT
  Age: 28 Year
  Sex: Female

DRUGS (3)
  1. TERBINAFINE HYDROCHLORIDE [Suspect]
     Indication: TINEA PEDIS
     Dosage: 250 MG
     Route: 048
     Dates: start: 20100127, end: 20100129
  2. ETHINYL ESTRADIOL TAB [Concomitant]
  3. LEVONORGESTREL [Concomitant]

REACTIONS (6)
  - DISTURBANCE IN ATTENTION [None]
  - DIZZINESS [None]
  - DYSGEUSIA [None]
  - IMPAIRED DRIVING ABILITY [None]
  - IMPAIRED WORK ABILITY [None]
  - NAUSEA [None]
